FAERS Safety Report 5083456-3 (Version None)
Quarter: 2006Q3

REPORT INFORMATION
  Report Type: 
  Country: None (occurrence: None)
  Receive Date: 20060818
  Receipt Date: 20060809
  Transmission Date: 20061208
  Serious: Yes (Hospitalization)
  Sender: FDA-Public Use
  Company Number: 2006UW15911

PATIENT
  Age: 26328 Day
  Sex: Male
  Weight: 143.2 kg

DRUGS (8)
  1. CRESTOR [Suspect]
     Indication: HYPERLIPIDAEMIA
     Route: 048
     Dates: start: 20040816, end: 20040801
  2. VIAGRA [Concomitant]
     Indication: ERECTILE DYSFUNCTION
     Dates: start: 20040816
  3. ATENOLOL [Concomitant]
     Indication: HYPERTENSION
  4. MAXZIDE [Concomitant]
     Indication: HYPERTENSION
  5. DIOVAN [Concomitant]
  6. VICODIN [Concomitant]
  7. BACTRIM [Concomitant]
  8. CIMETIDINE [Concomitant]

REACTIONS (6)
  - ABDOMINAL HAEMATOMA [None]
  - AZOTAEMIA [None]
  - BRONCHOSPASM [None]
  - HYPONATRAEMIA [None]
  - MYOSITIS [None]
  - UPPER RESPIRATORY TRACT INFECTION [None]
